FAERS Safety Report 9037566 (Version 1)
Quarter: 2013Q1

REPORT INFORMATION
  Report Type: Spontaneous
  Country: US (occurrence: US)
  Receive Date: 20130129
  Receipt Date: 20130129
  Transmission Date: 20140127
  Serious: No
  Sender: FDA-Public Use
  Company Number: US-009507513-1301USA012475

PATIENT
  Sex: Male

DRUGS (1)
  1. SAPHRIS [Suspect]
     Route: 060

REACTIONS (4)
  - Cardiac flutter [Recovered/Resolved]
  - Hypoaesthesia [Recovered/Resolved]
  - Cardiac flutter [Unknown]
  - Hypoaesthesia [Unknown]
